FAERS Safety Report 10488576 (Version 1)
Quarter: 2014Q4

REPORT INFORMATION
  Report Type: Spontaneous
  Country: US (occurrence: None)
  Receive Date: 20141001
  Receipt Date: 20141001
  Transmission Date: 20150528
  Serious: Yes (Other)
  Sender: FDA-Public Use
  Company Number: None

PATIENT
  Age: 56 Year
  Sex: Male
  Weight: 79.3 kg

DRUGS (1)
  1. OXALIPLATIN. [Suspect]
     Active Substance: OXALIPLATIN
     Indication: RECTAL CANCER
     Route: 058
     Dates: start: 20140527, end: 20140527

REACTIONS (12)
  - Drug hypersensitivity [None]
  - Pruritus [None]
  - Vomiting [None]
  - Haematemesis [None]
  - Cardio-respiratory arrest [None]
  - Erythema [None]
  - Urticaria [None]
  - Nausea [None]
  - Hypertension [None]
  - Hyperhidrosis [None]
  - Tremor [None]
  - Salivary hypersecretion [None]

NARRATIVE: CASE EVENT DATE: 20140527
